FAERS Safety Report 4339491-3 (Version None)
Quarter: 2004Q2

REPORT INFORMATION
  Report Type: 
  Country: None (occurrence: None)
  Receive Date: 20040415
  Receipt Date: 20040406
  Transmission Date: 20050107
  Serious: Yes (Other)
  Sender: FDA-Public Use
  Company Number: SG-ROCHE-363784

PATIENT
  Age: 49 Year
  Sex: Female

DRUGS (2)
  1. ROFERON-A [Suspect]
     Route: 058
  2. ROFERON-A [Suspect]
     Route: 058

REACTIONS (3)
  - ANXIETY [None]
  - STRESS SYMPTOMS [None]
  - TREMOR [None]
